FAERS Safety Report 8016516-5 (Version None)
Quarter: 2011Q4

REPORT INFORMATION
  Report Type: 
  Country: None (occurrence: None)
  Receive Date: 20111230
  Receipt Date: 20111228
  Transmission Date: 20120403
  Serious: Yes (Death)
  Sender: FDA-Public Use
  Company Number: US-ROCHE-1025920

PATIENT
  Age: 71 Year
  Sex: Female
  Weight: 64.4 kg

DRUGS (4)
  1. AVASTIN [Suspect]
     Indication: OVARIAN EPITHELIAL CANCER
     Dosage: OVER 30 -90 MINUTES ON DAY 1 OF CYCLE 2 PLUS
     Route: 042
     Dates: start: 20111103
  2. PACLITAXEL [Suspect]
     Indication: OVARIAN EPITHELIAL CANCER
     Dosage: OVER 1 HOUR ON DAY 1,8 AND 15
     Route: 042
  3. PACLITAXEL [Suspect]
     Dosage: DOSE REDUCED
     Dates: start: 20111123
  4. CARBOPLATIN [Suspect]
     Indication: OVARIAN EPITHELIAL CANCER
     Dosage: AUC 6 ON DAY 1 (CYCLES 1-6),
     Route: 042
     Dates: start: 20111103

REACTIONS (3)
  - VENTRICULAR FIBRILLATION [None]
  - SINUS TACHYCARDIA [None]
  - ATRIAL FIBRILLATION [None]
